FAERS Safety Report 13099242 (Version 1)
Quarter: 2017Q1

REPORT INFORMATION
  Report Type: Report from Study
  Country: BR (occurrence: BR)
  Receive Date: 20170109
  Receipt Date: 20170109
  Transmission Date: 20170428
  Serious: Yes (Life-Threatening, Other)
  Sender: FDA-Public Use
  Company Number: PHHY2017BR001867

PATIENT
  Sex: Male
  Weight: 55 kg

DRUGS (2)
  1. FORASEQ [Suspect]
     Active Substance: BUDESONIDE\FORMOTEROL FUMARATE
     Indication: CHRONIC OBSTRUCTIVE PULMONARY DISEASE
     Dosage: 1 DF (400 UG OF BUDESONIDE/12 UG OF FORMOTEROL FUMARATE), BID
     Route: 065
  2. ONBREZ BREEZHALER [Suspect]
     Active Substance: INDACATEROL
     Indication: CHRONIC OBSTRUCTIVE PULMONARY DISEASE
     Dosage: 150 MG, QD
     Route: 055

REACTIONS (11)
  - Feeling abnormal [Unknown]
  - Bronchitis [Unknown]
  - Pulmonary function test decreased [Unknown]
  - Disturbance in attention [Unknown]
  - Dizziness [Unknown]
  - Increased bronchial secretion [Unknown]
  - Malaise [Unknown]
  - Memory impairment [Unknown]
  - Dyspnoea [Recovering/Resolving]
  - Emphysema [Unknown]
  - Fatigue [Recovering/Resolving]
